FAERS Safety Report 10694810 (Version 1)
Quarter: 2015Q1

REPORT INFORMATION
  Report Type: Spontaneous
  Country: US (occurrence: None)
  Receive Date: 20150105
  Receipt Date: 20150105
  Transmission Date: 20150721
  Serious: Yes (Disabling)
  Sender: FDA-Public Use
  Company Number: None

PATIENT
  Age: 43 Year
  Sex: Male
  Weight: 87.09 kg

DRUGS (11)
  1. METOPROLOL [Concomitant]
     Active Substance: METOPROLOL
  2. HYDROXIDE / MYLANTA) [Concomitant]
  3. LITHIUM [Suspect]
     Active Substance: LITHIUM CARBONATE
     Dosage: 8-9 PILLS TWICE A DAY AT BEDTIME  BY MOUTH AND VERY TOXIC TO SYSTEM
  4. LAMTRIGINE [Concomitant]
     Dosage: 8-9 PILLS TWICE A DAY BEDTIME / DAY  BY MOUTH AND VERY TOXIC TO SYSTEM.?
  5. DULOXETINE [Concomitant]
     Active Substance: DULOXETINE
     Dosage: 8 - 9 PILLS TWICE A DAY BEDTIME /DAY BY MOUTH AND VERY TOXIC TO SYSTEM
  6. SODIUM CHLORIDE /NASAL SPRAY (PRN) [Concomitant]
  7. DUCOSATE SODIUM / (COLACE) [Concomitant]
  8. LORAZEPAM. [Concomitant]
     Active Substance: LORAZEPAM
     Dosage: 8 - 9 PILLS TWICE A DAY BEDTIME/ DAY BY MOUTH AND VERY TOXIC TO SYSTEM
     Route: 048
  9. LISINOPRIL. [Concomitant]
     Active Substance: LISINOPRIL
     Dosage: 8 - 9  PILLS TWICE A DAY BEDTIME / DAY BY MOUTH AND VERY TOXIC TO SYSTEM
  10. ACETAMINIOPHEN/ (TYLENOL) [Concomitant]
  11. MILK OF MAGNESIA [Concomitant]
     Active Substance: MAGNESIUM HYDROXIDE

REACTIONS (10)
  - Pain [None]
  - Irritability [None]
  - Poor quality drug administered [None]
  - Refusal of treatment by patient [None]
  - Confusional state [None]
  - Victim of abuse [None]
  - Fall [None]
  - Swelling [None]
  - Metamorphopsia [None]
  - Blindness [None]

NARRATIVE: CASE EVENT DATE: 20140219
